FAERS Safety Report 4967455-5 (Version None)
Quarter: 2006Q2

REPORT INFORMATION
  Report Type: 
  Country: None (occurrence: None)
  Receive Date: 20060407
  Receipt Date: 20060407
  Transmission Date: 20061013
  Serious: Yes (Other)
  Sender: FDA-Public Use
  Company Number: None

PATIENT
  Age: 76 Year
  Sex: Male
  Weight: 94 kg

DRUGS (2)
  1. TAMIFLU [Suspect]
     Indication: INFECTION PROPHYLAXIS
     Dosage: 75MG  -1 CAPSULE-  DAILY  OROPHARINGEAL
     Route: 049
     Dates: start: 20060315, end: 20060327
  2. TAMIFLU [Suspect]
     Indication: INFLUENZA
     Dosage: 75MG  -1 CAPSULE-  DAILY  OROPHARINGEAL
     Route: 049
     Dates: start: 20060315, end: 20060327

REACTIONS (5)
  - CONVULSION [None]
  - FOAMING AT MOUTH [None]
  - LETHARGY [None]
  - SALIVARY HYPERSECRETION [None]
  - SPEECH DISORDER [None]
